FAERS Safety Report 6690715-7 (Version None)
Quarter: 2010Q2

REPORT INFORMATION
  Report Type: 
  Country: None (occurrence: None)
  Receive Date: 20100421
  Receipt Date: 20100409
  Transmission Date: 20101027
  Serious: Yes (Death, Other)
  Sender: FDA-Public Use
  Company Number: FR-CEPHALON-2010002285

PATIENT
  Sex: Female

DRUGS (2)
  1. TREANDA [Suspect]
     Indication: MULTIPLE MYELOMA
     Dates: start: 20081128, end: 20081223
  2. TREANDA [Suspect]
     Dates: start: 20090119

REACTIONS (2)
  - FEBRILE NEUTROPENIA [None]
  - RESPIRATORY DISTRESS [None]
